FAERS Safety Report 6615885-8 (Version None)
Quarter: 2010Q1

REPORT INFORMATION
  Report Type: 
  Country: None (occurrence: None)
  Receive Date: 20100305
  Receipt Date: 20100224
  Transmission Date: 20100710
  Serious: Yes (Other)
  Sender: FDA-Public Use
  Company Number: ZA-ALLERGAN-0917014US

PATIENT
  Age: 78 Year
  Sex: Female

DRUGS (4)
  1. ACULAR [Suspect]
     Indication: DRUG USE FOR UNKNOWN INDICATION
     Dosage: UNK
     Route: 047
  2. EXOCIN [Concomitant]
     Indication: POSTOPERATIVE CARE
     Dosage: UNK
     Route: 047
  3. PRED FORTE [Concomitant]
     Indication: INFLAMMATION
     Dosage: UNK
     Route: 047
  4. MAXITROL [Concomitant]
     Dosage: UNK
     Route: 047

REACTIONS (1)
  - PUNCTATE KERATITIS [None]
